FAERS Safety Report 12391643 (Version 3)
Quarter: 2016Q3

REPORT INFORMATION
  Report Type: Report from Study
  Country: AU (occurrence: AU)
  Receive Date: 20160521
  Receipt Date: 20160722
  Transmission Date: 20161109
  Serious: Yes (Other)
  Sender: FDA-Public Use
  Company Number: AU-AMGEN-AUSNI2016063198

PATIENT
  Age: 11 Year
  Sex: Female

DRUGS (1)
  1. BLINATUMOMAB [Suspect]
     Active Substance: BLINATUMOMAB
     Indication: ACUTE LYMPHOCYTIC LEUKAEMIA RECURRENT
     Dosage: 15 MUG/M2, QD
     Route: 042
     Dates: start: 20150831, end: 20151109

REACTIONS (1)
  - Leukaemic infiltration extramedullary [Recovered/Resolved]

NARRATIVE: CASE EVENT DATE: 20160506
